FAERS Safety Report 4344943-6 (Version None)
Quarter: 2004Q2

REPORT INFORMATION
  Report Type: 
  Country: None (occurrence: None)
  Receive Date: 20040420
  Receipt Date: 20040405
  Transmission Date: 20050107
  Serious: Yes (Hospitalization)
  Sender: FDA-Public Use
  Company Number: 2004-0006894

PATIENT
  Age: 53 Year
  Sex: Male
  Weight: 84 kg

DRUGS (7)
  1. VIREAD [Suspect]
     Indication: HIV INFECTION
     Dosage: 300 MG, 1 IN 1 D, ORAL
     Route: 048
  2. NORVIR (RITONAVIR) (100 MILLIGRAM, TABLET) [Suspect]
     Indication: HIV INFECTION
     Dosage: 100 MG, 2 IN 1 D, ORAL
     Route: 048
  3. CRIXIVAN [Suspect]
     Indication: HIV INFECTION
  4. EPIVIR [Suspect]
     Dosage: 300 MG
  5. ZIAGEN (ABACAVIR SULFATE) (300 MILLIGRAM) [Suspect]
     Dosage: 300 MG, 1 IN 1 D
  6. VIRAFERON PEG (PEGINTERFERON ALFA-2A) (125) [Suspect]
     Dosage: 125, 1 WK, SUBCUTANEOUS
     Route: 058
     Dates: start: 20030401
  7. REBETOL [Concomitant]

REACTIONS (6)
  - KAPOSI'S SARCOMA [None]
  - LYMPHOEDEMA [None]
  - OEDEMA PERIPHERAL [None]
  - OSTEOARTHRITIS [None]
  - TENDONITIS [None]
  - TENOSYNOVITIS [None]
